FAERS Safety Report 8789697 (Version 1)
Quarter: 2012Q4

REPORT INFORMATION
  Report Type: Spontaneous
  Country: US (occurrence: None)
  Receive Date: 20120911
  Receipt Date: 20120911
  Transmission Date: 20130627
  Serious: No
  Sender: FDA-Public Use
  Company Number: None

PATIENT
  Age: 74 Year
  Sex: Male

DRUGS (8)
  1. REVLIMID [Suspect]
     Indication: MULTIPLE MYELOMA
     Route: 048
     Dates: start: 201208
  2. ASA [Concomitant]
  3. DESIPRAMINE [Concomitant]
  4. METOPROLOL [Concomitant]
  5. AMLODIPINE [Concomitant]
  6. ACYCLOVIR [Concomitant]
  7. LIPITOR [Concomitant]
  8. CHLORTHALIDONE [Concomitant]

REACTIONS (5)
  - Pruritus [None]
  - Periorbital oedema [None]
  - Rash macular [None]
  - Rash [None]
  - Rash [None]
